FAERS Safety Report 4392074-1 (Version None)
Quarter: 2004Q3

REPORT INFORMATION
  Report Type: 
  Country: None (occurrence: None)
  Receive Date: 20040702
  Receipt Date: 20040621
  Transmission Date: 20050211
  Serious: Yes (Other)
  Sender: FDA-Public Use
  Company Number: 2004033235

PATIENT
  Age: 54 Year
  Sex: Male

DRUGS (3)
  1. LIPITOR [Suspect]
     Indication: BLOOD CHOLESTEROL INCREASED
  2. SIMVASTATIN [Suspect]
     Indication: ILL-DEFINED DISORDER
     Dates: start: 20020801, end: 20020801
  3. ESOMEPRAZOLE [Concomitant]

REACTIONS (13)
  - ABDOMINAL PAIN UPPER [None]
  - ASTHENIA [None]
  - CONVULSION [None]
  - DIARRHOEA [None]
  - DIZZINESS [None]
  - DRUG INEFFECTIVE [None]
  - HEPATIC ENZYME INCREASED [None]
  - MUSCLE CRAMP [None]
  - MYOCARDIAL INFARCTION [None]
  - PAIN IN EXTREMITY [None]
  - POLYURIA [None]
  - TREATMENT NONCOMPLIANCE [None]
  - VOMITING [None]
